FAERS Safety Report 4528500-4 (Version None)
Quarter: 2004Q4

REPORT INFORMATION
  Report Type: 
  Country: None (occurrence: None)
  Receive Date: 20041216
  Receipt Date: 20041206
  Transmission Date: 20050328
  Serious: Yes (Other)
  Sender: FDA-Public Use
  Company Number: CH-BRISTOL-MYERS SQUIBB COMPANY-12789244

PATIENT
  Sex: Male

DRUGS (1)
  1. COAPROVEL TABS 150MG/12.5MG [Suspect]
     Indication: HYPERTENSION
     Dosage: DOSAGE FORM= 150 MG + 12.5 MG
     Route: 048
     Dates: start: 20040301, end: 20040503

REACTIONS (1)
  - INFARCTION [None]
